FAERS Safety Report 4281661-7 (Version None)
Quarter: 2004Q1

REPORT INFORMATION
  Report Type: 
  Country: None (occurrence: None)
  Receive Date: 20040120
  Receipt Date: 20031002
  Transmission Date: 20041129
  Serious: No
  Sender: FDA-Public Use
  Company Number: 2003-10-1297

PATIENT
  Age: 58 Year
  Sex: Female

DRUGS (4)
  1. CLARINEX [Suspect]
     Dosage: ORAL
     Route: 048
  2. PROZAC [Concomitant]
  3. PRILOSEC [Concomitant]
  4. VICODIN [Concomitant]

REACTIONS (2)
  - DRUG INEFFECTIVE [None]
  - HUNGER [None]
